FAERS Safety Report 15560851 (Version 1)
Quarter: 2018Q4

REPORT INFORMATION
  Report Type: Spontaneous
  Country: US (occurrence: US)
  Receive Date: 20181023
  Receipt Date: 20181023
  Transmission Date: 20190205
  Serious: Yes (Death)
  Sender: FDA-Public Use
  Company Number: None

PATIENT
  Age: 76 Year
  Sex: Male

DRUGS (1)
  1. TACROLIMUS 1 MG AND 0.5 MG [Suspect]
     Active Substance: TACROLIMUS
     Indication: HEART TRANSPLANT
     Dosage: ?          OTHER FREQUENCY:0.5 MG AM 1 MG PM;?
     Route: 048
     Dates: start: 20130617

REACTIONS (1)
  - Death [None]

NARRATIVE: CASE EVENT DATE: 20181022
